FAERS Safety Report 6751403-1 (Version None)
Quarter: 2010Q2

REPORT INFORMATION
  Report Type: 
  Country: None (occurrence: None)
  Receive Date: 20100526
  Receipt Date: 20100224
  Transmission Date: 20101027
  Serious: No
  Sender: FDA-Public Use
  Company Number: 305095

PATIENT
  Age: 57 Year
  Sex: Female

DRUGS (6)
  1. VICTOZA [Suspect]
     Indication: TYPE 2 DIABETES MELLITUS
     Dosage: 0.6 MG, QD, SUBCUTANEOUS
     Route: 058
     Dates: start: 20100217
  2. LORATAB (LORATADINE) [Concomitant]
  3. JANUVIA [Concomitant]
  4. ACTOS [Concomitant]
  5. GLYBURIDE [Concomitant]
  6. TRIGLYCERIDES (TRIGLYCERIDES) [Concomitant]

REACTIONS (2)
  - BLOOD GLUCOSE INCREASED [None]
  - FEELING ABNORMAL [None]
